FAERS Safety Report 9048555 (Version 1)
Quarter: 2013Q1

REPORT INFORMATION
  Report Type: Spontaneous
  Country: US (occurrence: None)
  Receive Date: 20130116
  Receipt Date: 20130116
  Transmission Date: 20140127
  Serious: Yes (Death)
  Sender: FDA-Public Use
  Company Number: DSA_61862_2013

PATIENT
  Age: 69 Year
  Sex: Female

DRUGS (1)
  1. XENAZINE 25 MG (NOT SPECIFIED) [Suspect]
     Indication: DYSKINESIA
     Route: 048
     Dates: start: 20100806, end: 20121210

REACTIONS (1)
  - Death [None]
